FAERS Safety Report 8790454 (Version 1)
Quarter: 2012Q4

REPORT INFORMATION
  Report Type: Spontaneous
  Country: US (occurrence: None)
  Receive Date: 20120911
  Receipt Date: 20120911
  Transmission Date: 20130627
  Serious: No
  Sender: FDA-Public Use
  Company Number: None

PATIENT
  Age: 81 Year
  Sex: Female
  Weight: 86.18 kg

DRUGS (1)
  1. MULTAQ [Suspect]
     Indication: ATRIAL FIBRILLATION
     Route: 048
     Dates: start: 20120601, end: 20120907

REACTIONS (6)
  - Ear discomfort [None]
  - Ear pain [None]
  - Rash erythematous [None]
  - Rash [None]
  - Burning sensation [None]
  - Rash pruritic [None]
